FAERS Safety Report 9954902 (Version 1)
Quarter: 2014Q1

REPORT INFORMATION
  Report Type: Report from Study
  Country: US (occurrence: US)
  Receive Date: 20140304
  Receipt Date: 20140304
  Transmission Date: 20141002
  Serious: Yes (Other)
  Sender: FDA-Public Use
  Company Number: US-ABBVIE-13P-163-1082663-00

PATIENT
  Age: 32 Year
  Sex: Female

DRUGS (15)
  1. HUMIRA [Suspect]
     Indication: CROHN^S DISEASE
     Dates: start: 2005
  2. HUMIRA [Suspect]
     Dates: start: 2011
  3. AUGMENTIN [Concomitant]
     Indication: PRODUCT USED FOR UNKNOWN INDICATION
     Dosage: TAKES WITH FLAGYL
  4. FLAGYL [Concomitant]
     Indication: PRODUCT USED FOR UNKNOWN INDICATION
     Dosage: TAKES WITH AUGMENTIN
  5. CIPRO [Concomitant]
     Indication: PRODUCT USED FOR UNKNOWN INDICATION
     Dosage: 500 MG DAILY WHEN AUGMENTIN AND FLAGYL IS STOPPED
  6. TRI LEGEST FE [Concomitant]
     Indication: CONTRACEPTION
     Dosage: DAILY
  7. PERCOCET [Concomitant]
     Indication: PAIN
     Dosage: 10/325 MG, 20 MG TWICE DAILY
  8. TRAZODONE [Concomitant]
     Indication: INSOMNIA
  9. VITAMINS [Concomitant]
     Indication: PRODUCT USED FOR UNKNOWN INDICATION
  10. SUPPLEMENTS [Concomitant]
     Indication: PRODUCT USED FOR UNKNOWN INDICATION
  11. BENADRYL [Concomitant]
     Indication: PRODUCT USED FOR UNKNOWN INDICATION
  12. ZANTAC [Concomitant]
     Indication: PRODUCT USED FOR UNKNOWN INDICATION
  13. EFFEXOR [Concomitant]
     Indication: ANTIDEPRESSANT THERAPY
     Dosage: 150 MG DAILY TITRATED UP OVER PAST WEEK (APR 2013)
  14. CELEXA [Concomitant]
     Indication: ANTIDEPRESSANT THERAPY
     Dosage: 40MG DAILY
  15. CELEXA [Concomitant]
     Dosage: 20 MG DAILY TITRATED DOWN PAST WEEK (APR 2013)

REACTIONS (16)
  - Ileostomy [Not Recovered/Not Resolved]
  - Drug effect decreased [Unknown]
  - Crohn^s disease [Unknown]
  - Rectal discharge [Unknown]
  - Fistula discharge [Unknown]
  - Abscess [Unknown]
  - Mucous stools [Unknown]
  - Anorectal disorder [Unknown]
  - Scar [Unknown]
  - Feeling hot [Unknown]
  - Erythema [Unknown]
  - Induration [Unknown]
  - Anorectal discomfort [Unknown]
  - Dermatitis [Recovering/Resolving]
  - Vitamin B12 deficiency [Unknown]
  - Fistula [Unknown]
